FAERS Safety Report 5890237-7 (Version None)
Quarter: 2008Q3

REPORT INFORMATION
  Report Type: 
  Country: None (occurrence: None)
  Receive Date: 20080919
  Receipt Date: 20080910
  Transmission Date: 20090109
  Serious: Yes (Other)
  Sender: FDA-Public Use
  Company Number: BR-PFIZER INC-2008076720

PATIENT
  Sex: Female
  Weight: 70 kg

DRUGS (3)
  1. CELEBRA [Suspect]
     Indication: SCIATICA
     Route: 048
     Dates: start: 20080901, end: 20080904
  2. PURAN T4 [Concomitant]
     Route: 065
  3. VENLAFAXINE HCL [Concomitant]

REACTIONS (7)
  - ERYTHEMA [None]
  - FACE OEDEMA [None]
  - HYPOAESTHESIA [None]
  - LABYRINTHITIS [None]
  - NAUSEA [None]
  - TREMOR [None]
  - VISION BLURRED [None]
